FAERS Safety Report 19136512 (Version 7)
Quarter: 2021Q2

REPORT INFORMATION
  Report Type: Report from Study
  Country: HU (occurrence: HU)
  Receive Date: 20210415
  Receipt Date: 20210628
  Transmission Date: 20210717
  Serious: Yes (Death, Life-Threatening, Hospitalization, Disabling, Other)
  Sender: FDA-Public Use
  Company Number: HU-AMGEN-HUNCT2021056445

PATIENT
  Age: 71 Year
  Sex: Female
  Weight: 73.5 kg

DRUGS (14)
  1. DEXAMETHASONE. [Suspect]
     Active Substance: DEXAMETHASONE
     Indication: PLASMA CELL MYELOMA
     Dosage: 40 MILLIGRAM (1 IN 1 WK)
     Route: 048
     Dates: start: 20210202, end: 20210222
  2. DOXAZOSIN [Concomitant]
     Active Substance: DOXAZOSIN MESYLATE
     Indication: HYPERTENSION
     Dosage: 2 MILLIGRAM (2 MILLIGRAM, 1 IN 1)
     Route: 048
     Dates: start: 2017
  3. CARFILZOMIB [Suspect]
     Active Substance: CARFILZOMIB
     Indication: PLASMA CELL MYELOMA
     Dosage: 34 MILLIGRAM (1 IN 1 WK)
     Route: 042
     Dates: start: 20210202, end: 20210202
  4. VENETOCLAX. [Suspect]
     Active Substance: VENETOCLAX
     Indication: PLASMA CELL MYELOMA
     Dosage: 800 MILLIGRAM (1 IN 1 D)
     Route: 048
     Dates: start: 20210202, end: 20210407
  5. ACICLOVIR [Concomitant]
     Active Substance: ACYCLOVIR
     Indication: ANTIBIOTIC PROPHYLAXIS
     Dosage: 800 MILLIGRAM  (800 MILLIGRAM , 1 IN 1 D)
     Route: 048
     Dates: start: 20210125
  6. COVEREX AS KOMB [Concomitant]
     Indication: HYPERTENSION
     Dosage: 10/2.5 MILLIGRAM (1 IN 1 D)
     Route: 048
     Dates: start: 2017
  7. AMLODIPINE [Concomitant]
     Active Substance: AMLODIPINE BESYLATE
     Indication: HYPERTENSION
     Dosage: 5 MILLIGRAM, AS NECESSARY
     Route: 048
     Dates: start: 20210203
  8. DEXAMETHASONE. [Suspect]
     Active Substance: DEXAMETHASONE
     Dosage: 20 MILLIGRAM (1 IN 1 WK)
     Route: 048
     Dates: start: 20210301, end: 20210407
  9. SUMETROLIM [Concomitant]
     Active Substance: SULFAMETHOXAZOLE\TRIMETHOPRIM
     Indication: ANTIBIOTIC PROPHYLAXIS
     Dosage: 400/80 MILLIGRAM (2 TABLET, 1 IN 2 D)
     Route: 048
     Dates: start: 20210129
  10. LEVOFLOXACIN. [Concomitant]
     Active Substance: LEVOFLOXACIN
     Indication: ANTIBIOTIC PROPHYLAXIS
     Dosage: 500 MILLIGRAM (500 MILLIGRAM, 1 IN 1 D)
     Route: 048
     Dates: start: 20210129
  11. ROSUTEC [Concomitant]
     Indication: CORONARY ARTERY DISEASE
     Dosage: 10 MILLIGRAM ( 10 MILLIGRAM, 1 IN 1 D)
     Route: 048
     Dates: start: 2019
  12. PANTOPRAZOLE [Concomitant]
     Active Substance: PANTOPRAZOLE
     Indication: GASTROOESOPHAGEAL REFLUX PROPHYLAXIS
     Dosage: 20 MILLIGRAM (20 MILLIGRAM  1 IN 1 D)
     Route: 048
     Dates: start: 2019
  13. CARFILZOMIB [Suspect]
     Active Substance: CARFILZOMIB
     Dosage: 119 MILLIGRAM (1 IN 1 WK)
     Route: 042
     Dates: start: 20210208, end: 20210407
  14. ASPIRIN. [Concomitant]
     Active Substance: ASPIRIN
     Indication: EMBOLISM
     Dosage: 100 MILLIGRAM (100 MILLIGRAM  1 IN 1 D)
     Route: 048
     Dates: start: 2019

REACTIONS (4)
  - Respiratory failure [Unknown]
  - Pneumonia [Unknown]
  - Cardiac failure acute [Fatal]
  - Sepsis [Unknown]

NARRATIVE: CASE EVENT DATE: 20210407
